FAERS Safety Report 12043897 (Version 56)
Quarter: 2021Q1

REPORT INFORMATION
  Report Type: Other
  Country: CA (occurrence: CA)
  Receive Date: 20160208
  Receipt Date: 20210210
  Transmission Date: 20210419
  Serious: Yes (Hospitalization, Other)
  Sender: FDA-Public Use
  Company Number: CA-ROCHE-1693489

PATIENT
  Age: 61 Year
  Sex: Female
  Weight: 68 kg

DRUGS (29)
  1. ACTEMRA [Suspect]
     Active Substance: TOCILIZUMAB
     Route: 042
     Dates: start: 20161219, end: 20170313
  2. METHOTREXATE. [Concomitant]
     Active Substance: METHOTREXATE
     Dosage: ONGOING
     Route: 058
  3. OMEPRAZOLE. [Concomitant]
     Active Substance: OMEPRAZOLE
  4. ACTEMRA [Suspect]
     Active Substance: TOCILIZUMAB
     Route: 042
     Dates: start: 20160926
  5. ACTEMRA [Suspect]
     Active Substance: TOCILIZUMAB
     Route: 042
     Dates: start: 20161024
  6. ACTEMRA [Suspect]
     Active Substance: TOCILIZUMAB
     Route: 042
     Dates: start: 20180214
  7. ALENDRONATE [Concomitant]
     Active Substance: ALENDRONATE SODIUM
  8. NOVO?GESIC [Concomitant]
     Active Substance: ACETAMINOPHEN
  9. CELEBREX [Concomitant]
     Active Substance: CELECOXIB
     Route: 065
  10. ACTEMRA [Suspect]
     Active Substance: TOCILIZUMAB
     Route: 042
     Dates: start: 20180314
  11. ACTEMRA [Suspect]
     Active Substance: TOCILIZUMAB
     Route: 042
     Dates: start: 20170623
  12. ACTEMRA [Suspect]
     Active Substance: TOCILIZUMAB
     Route: 042
     Dates: start: 20161219, end: 20170313
  13. ACTEMRA [Suspect]
     Active Substance: TOCILIZUMAB
     Route: 042
     Dates: start: 2017, end: 20180704
  14. NAPROXEN. [Suspect]
     Active Substance: NAPROXEN
     Indication: PRODUCT USED FOR UNKNOWN INDICATION
     Route: 065
  15. NAPROXEN. [Suspect]
     Active Substance: NAPROXEN
     Route: 065
  16. CALCIUM [Concomitant]
     Active Substance: CALCIUM
  17. ACTEMRA [Suspect]
     Active Substance: TOCILIZUMAB
     Route: 042
     Dates: start: 20180509
  18. PREDNISONE. [Concomitant]
     Active Substance: PREDNISONE
     Route: 048
  19. METFORMIN [Suspect]
     Active Substance: METFORMIN HYDROCHLORIDE
     Indication: DIABETES MELLITUS
     Route: 048
     Dates: end: 2016
  20. LEUCOVORIN. [Concomitant]
     Active Substance: LEUCOVORIN
  21. ACTEMRA [Suspect]
     Active Substance: TOCILIZUMAB
     Dosage: INFUSION NO. 27
     Route: 042
     Dates: start: 20180606
  22. PLAQUENIL [Concomitant]
     Active Substance: HYDROXYCHLOROQUINE SULFATE
  23. ACTEMRA [Suspect]
     Active Substance: TOCILIZUMAB
     Indication: RHEUMATOID ARTHRITIS
     Route: 042
     Dates: start: 20151210, end: 20161024
  24. ACTEMRA [Suspect]
     Active Substance: TOCILIZUMAB
     Dosage: INFUSION 17
     Route: 042
     Dates: start: 20170828
  25. ACTEMRA [Suspect]
     Active Substance: TOCILIZUMAB
     Route: 042
     Dates: start: 20150821
  26. ACTEMRA [Suspect]
     Active Substance: TOCILIZUMAB
     Route: 042
     Dates: start: 20170925, end: 20180704
  27. ACTEMRA [Suspect]
     Active Substance: TOCILIZUMAB
     Dosage: INFUSION NUMBER: 19
     Route: 042
     Dates: start: 20171023
  28. ACTEMRA [Suspect]
     Active Substance: TOCILIZUMAB
     Dosage: INITIAL DOSING NOT REPORTED
     Route: 042
  29. ACTEMRA [Suspect]
     Active Substance: TOCILIZUMAB
     Dosage: ONGOING
     Route: 042
     Dates: start: 20180814

REACTIONS (59)
  - Upper limb fracture [Unknown]
  - Disability assessment scale score increased [Not Recovered/Not Resolved]
  - Fatigue [Not Recovered/Not Resolved]
  - Joint swelling [Unknown]
  - Arthralgia [Unknown]
  - Oropharyngeal pain [Not Recovered/Not Resolved]
  - Arthralgia [Recovered/Resolved]
  - Fatigue [Recovering/Resolving]
  - Nausea [Unknown]
  - Influenza [Recovered/Resolved]
  - Swelling face [Unknown]
  - Malaise [Unknown]
  - Pain in jaw [Unknown]
  - Dyspnoea [Unknown]
  - Arthralgia [Unknown]
  - Arthralgia [Not Recovered/Not Resolved]
  - Bronchitis [Unknown]
  - Blood pressure systolic increased [Unknown]
  - Pain in extremity [Recovered/Resolved]
  - Arthritis [Unknown]
  - Oral pain [Not Recovered/Not Resolved]
  - Contusion [Unknown]
  - Vomiting [Unknown]
  - Fibromyalgia [Unknown]
  - Blood pressure diastolic decreased [Unknown]
  - Abdominal pain [Recovered/Resolved]
  - Hot flush [Unknown]
  - Headache [Unknown]
  - Anxiety [Unknown]
  - Headache [Unknown]
  - Heart rate increased [Unknown]
  - Diabetes mellitus [Not Recovered/Not Resolved]
  - Blood pressure diastolic abnormal [Unknown]
  - Pruritus [Not Recovered/Not Resolved]
  - Pain [Not Recovered/Not Resolved]
  - Pain [Unknown]
  - Nausea [Recovered/Resolved]
  - Road traffic accident [Unknown]
  - Ligament sprain [Unknown]
  - Rheumatoid arthritis [Recovering/Resolving]
  - Cough [Unknown]
  - Infusion related reaction [Recovering/Resolving]
  - Poor venous access [Unknown]
  - Abdominal pain upper [Not Recovered/Not Resolved]
  - Blood pressure diastolic increased [Unknown]
  - Fall [Unknown]
  - Arthralgia [Not Recovered/Not Resolved]
  - Diarrhoea [Not Recovered/Not Resolved]
  - Abdominal pain upper [Unknown]
  - Gait disturbance [Not Recovered/Not Resolved]
  - Weight decreased [Not Recovered/Not Resolved]
  - Stress [Unknown]
  - Poor quality sleep [Unknown]
  - Blood pressure fluctuation [Unknown]
  - Gastrointestinal disorder [Recovered/Resolved]
  - Body temperature increased [Unknown]
  - Renal pain [Unknown]
  - Tooth fracture [Unknown]
  - Infusion related reaction [Unknown]

NARRATIVE: CASE EVENT DATE: 2016
